FAERS Safety Report 25665005 (Version 1)
Quarter: 2025Q3

REPORT INFORMATION
  Report Type: Spontaneous
  Country: US (occurrence: None)
  Receive Date: 20250809
  Receipt Date: 20250809
  Transmission Date: 20251021
  Serious: Yes (Disabling)
  Sender: FDA-CTU
  Company Number: None

PATIENT
  Age: 85 Year
  Sex: Male
  Weight: 77.85 kg

DRUGS (7)
  1. LEXISCAN [Suspect]
     Active Substance: REGADENOSON
     Indication: Scan myocardial perfusion
     Route: 042
     Dates: start: 20250805, end: 20250805
  2. METOPROLOL [Concomitant]
     Active Substance: METOPROLOL
  3. LISINOPRIL [Concomitant]
     Active Substance: LISINOPRIL
  4. FLECAINIDE [Concomitant]
     Active Substance: FLECAINIDE
  5. FINASTERIDE [Concomitant]
     Active Substance: FINASTERIDE
  6. TAMSULOSIN [Concomitant]
     Active Substance: TAMSULOSIN
  7. Spectrum Silver [Concomitant]

REACTIONS (3)
  - Ankylosing spondylitis [None]
  - Cardiac procedure complication [None]
  - Post procedural complication [None]

NARRATIVE: CASE EVENT DATE: 20250805
